FAERS Safety Report 15534893 (Version 1)
Quarter: 2018Q4

REPORT INFORMATION
  Report Type: Spontaneous
  Country: US (occurrence: US)
  Receive Date: 20181022
  Receipt Date: 20181022
  Transmission Date: 20190205
  Serious: No
  Sender: FDA-Public Use
  Company Number: US-TEVA-2018-US-963738

PATIENT
  Sex: Male

DRUGS (1)
  1. TESTOSTERONE CYP INJ [Suspect]
     Active Substance: TESTOSTERONE CYPIONATE
     Indication: BLOOD TESTOSTERONE DECREASED
     Route: 065

REACTIONS (3)
  - Anxiety [Unknown]
  - Drug effect decreased [Unknown]
  - Feeling jittery [Unknown]
